FAERS Safety Report 24889309 (Version 1)
Quarter: 2025Q1

REPORT INFORMATION
  Report Type: Spontaneous
  Country: US (occurrence: US)
  Receive Date: 20250127
  Receipt Date: 20250127
  Transmission Date: 20250408
  Serious: No
  Sender: BAUSCH AND LOMB
  Company Number: US-BAUSCH-BL-2025-000903

PATIENT
  Age: 79 Year
  Sex: Female

DRUGS (1)
  1. JUBLIA [Suspect]
     Active Substance: EFINACONAZOLE
     Indication: Onychomycosis
     Route: 065
     Dates: start: 202412

REACTIONS (2)
  - Skin fissures [Unknown]
  - Therapeutic product effect incomplete [Unknown]
